FAERS Safety Report 25913633 (Version 1)
Quarter: 2025Q4

REPORT INFORMATION
  Report Type: Other
  Country: AU (occurrence: AU)
  Receive Date: 20251013
  Receipt Date: 20251013
  Transmission Date: 20260117
  Serious: Yes (Other)
  Sender: LUPIN
  Company Number: AU-LUPIN PHARMACEUTICALS INC.-2025-09165

PATIENT
  Age: 55 Year
  Sex: Female

DRUGS (3)
  1. FLUOXETINE HYDROCHLORIDE [Suspect]
     Active Substance: FLUOXETINE HYDROCHLORIDE
     Indication: Product used for unknown indication
     Dosage: UNK
     Route: 065
  2. CIPROFLOXACIN [Suspect]
     Active Substance: CIPROFLOXACIN
     Indication: Product used for unknown indication
     Dosage: UNK
     Route: 065
  3. FLUCONAZOLE [Suspect]
     Active Substance: FLUCONAZOLE
     Indication: Product used for unknown indication
     Dosage: UNK
     Route: 065

REACTIONS (10)
  - Altered state of consciousness [Unknown]
  - Arrhythmia [Unknown]
  - Cardiac arrest [Unknown]
  - Electrocardiogram QT prolonged [Unknown]
  - Syncope [Unknown]
  - Stress cardiomyopathy [Unknown]
  - Ventricular tachycardia [Unknown]
  - Torsade de pointes [Unknown]
  - Retrograde amnesia [Unknown]
  - Pulse abnormal [Unknown]
